FAERS Safety Report 12584946 (Version 5)
Quarter: 2018Q1

REPORT INFORMATION
  Report Type: Report from Study
  Country: US (occurrence: US)
  Receive Date: 20160722
  Receipt Date: 20180105
  Transmission Date: 20180508
  Serious: No
  Sender: FDA-Public Use
  Company Number: US-AMGEN-USASL2016070420

PATIENT
  Age: 66 Year
  Sex: Female

DRUGS (3)
  1. REPATHA [Suspect]
     Active Substance: EVOLOCUMAB
     Indication: HYPERCHOLESTEROLAEMIA
     Dosage: 140 MG, Q2WK
     Route: 058
     Dates: start: 20160523
  2. REPATHA [Suspect]
     Active Substance: EVOLOCUMAB
     Indication: HYPERLIPIDAEMIA
  3. COQ10 [Concomitant]
     Active Substance: UBIDECARENONE
     Dosage: 300 MG, QD

REACTIONS (11)
  - Musculoskeletal pain [Recovered/Resolved]
  - Nasopharyngitis [Unknown]
  - Hypotension [Unknown]
  - Influenza like illness [Unknown]
  - Orthostatic hypotension [Unknown]
  - Pain in extremity [Recovered/Resolved]
  - Muscle spasms [Unknown]
  - Blood pressure systolic abnormal [Unknown]
  - Blood pressure diastolic decreased [Unknown]
  - Back pain [Recovered/Resolved]
  - Influenza [Unknown]

NARRATIVE: CASE EVENT DATE: 20160526
